FAERS Safety Report 17524639 (Version 1)
Quarter: 2020Q1

REPORT INFORMATION
  Report Type: Spontaneous
  Country: EE (occurrence: EE)
  Receive Date: 20200310
  Receipt Date: 20200310
  Transmission Date: 20200409
  Serious: Yes (Hospitalization)
  Sender: FDA-Public Use
  Company Number: EE-ABBVIE-20K-221-3304602-00

PATIENT
  Age: 81 Year
  Sex: Male

DRUGS (6)
  1. SALAZOPYRIN [Concomitant]
     Active Substance: SULFASALAZINE
     Indication: PRODUCT USED FOR UNKNOWN INDICATION
     Dosage: EN 500 MG GASTRORESISTENTSED TABLETID
  2. ISONIAZID. [Concomitant]
     Active Substance: ISONIAZID
     Indication: LATENT TUBERCULOSIS
     Route: 048
     Dates: start: 20191213
  3. PARACETAMOL CODEINE [Concomitant]
     Active Substance: ACETAMINOPHEN\CODEINE PHOSPHATE
     Indication: PAIN
     Route: 048
  4. SULFASALAZINE. [Concomitant]
     Active Substance: SULFASALAZINE
     Indication: TACHYCARDIA
     Route: 048
     Dates: start: 20070101
  5. HUMIRA [Suspect]
     Active Substance: ADALIMUMAB
     Indication: ANKYLOSING SPONDYLITIS
     Route: 058
     Dates: start: 20101201, end: 202001
  6. METOPROLOL. [Concomitant]
     Active Substance: METOPROLOL
     Indication: HYPERTENSION
     Route: 048

REACTIONS (6)
  - Malaise [Recovering/Resolving]
  - Syncope [Recovered/Resolved]
  - Hypotension [Recovered/Resolved]
  - Cardiac failure [Recovering/Resolving]
  - Cardiac dysfunction [Recovering/Resolving]
  - Atrial tachycardia [Recovering/Resolving]

NARRATIVE: CASE EVENT DATE: 20191108
